FAERS Safety Report 6380621-X (Version None)
Quarter: 2009Q3

REPORT INFORMATION
  Report Type: 
  Country: None (occurrence: None)
  Receive Date: 20090923
  Receipt Date: 20090911
  Transmission Date: 20100115
  Serious: Yes (Death, Other)
  Sender: FDA-Public Use
  Company Number: CLOF-1000696

PATIENT
  Age: 30 Year

DRUGS (1)
  1. EVOLTRA (CLOFARABINE) SOLUTION FOR INFUSION [Suspect]
     Indication: ACUTE LEUKAEMIA
     Dosage: INTRAVENOUS
     Route: 042

REACTIONS (3)
  - BLOOD DISORDER [None]
  - DISEASE COMPLICATION [None]
  - HYDROCEPHALUS [None]
